FAERS Safety Report 17477052 (Version 1)
Quarter: 2020Q1

REPORT INFORMATION
  Report Type: Report from Study
  Country: BR (occurrence: BR)
  Receive Date: 20200228
  Receipt Date: 20200228
  Transmission Date: 20200409
  Serious: Yes (Hospitalization, Other)
  Sender: FDA-Public Use
  Company Number: BR-JNJFOC-20191042556

PATIENT
  Sex: Female
  Weight: 102 kg

DRUGS (3)
  1. HUMIRA [Suspect]
     Active Substance: ADALIMUMAB
     Indication: PSORIASIS
     Dates: end: 201903
  2. STELARA [Suspect]
     Active Substance: USTEKINUMAB
     Indication: PSORIASIS
     Route: 058
     Dates: start: 20171023, end: 20190416
  3. DESOGESTREL [Concomitant]
     Active Substance: DESOGESTREL

REACTIONS (4)
  - Vaginal haemorrhage [Recovered/Resolved]
  - Liver contusion [Unknown]
  - Product dose omission [Unknown]
  - Anaemia [Unknown]
